FAERS Safety Report 6888810-2 (Version None)
Quarter: 2010Q3

REPORT INFORMATION
  Report Type: 
  Country: None (occurrence: None)
  Receive Date: 20100730
  Receipt Date: 20071101
  Transmission Date: 20110219
  Serious: No
  Sender: FDA-Public Use
  Company Number: US-PFIZER INC-2007092535

PATIENT
  Sex: Male
  Weight: 93.636 kg

DRUGS (4)
  1. LIPITOR [Suspect]
     Indication: BLOOD CHOLESTEROL INCREASED
  2. METFORMIN HCL [Concomitant]
     Indication: TYPE 2 DIABETES MELLITUS
  3. PAROXETINE HCL [Concomitant]
  4. ALLOPURINOL [Concomitant]
     Indication: GOUT

REACTIONS (2)
  - INSOMNIA [None]
  - SLEEP DISORDER [None]
